FAERS Safety Report 7715681-4 (Version None)
Quarter: 2011Q3

REPORT INFORMATION
  Report Type: 
  Country: None (occurrence: None)
  Receive Date: 20110823
  Receipt Date: 20110810
  Transmission Date: 20111222
  Serious: Yes (Other)
  Sender: FDA-Public Use
  Company Number: 1000023023

PATIENT
  Sex: Female

DRUGS (1)
  1. ESCITALOPRAM OXALATE [Suspect]

REACTIONS (4)
  - CHOLELITHIASIS [None]
  - ARTHROPATHY [None]
  - CALCINOSIS [None]
  - NEPHROLITHIASIS [None]
